FAERS Safety Report 5777112-3 (Version None)
Quarter: 2008Q2

REPORT INFORMATION
  Report Type: 
  Country: None (occurrence: None)
  Receive Date: 20080616
  Receipt Date: 20080529
  Transmission Date: 20081010
  Serious: Yes (Other)
  Sender: FDA-Public Use
  Company Number: AU-1166318

PATIENT
  Age: 52 Year
  Sex: Female

DRUGS (4)
  1. GENTAMICIN SULFATE [Suspect]
     Dosage: Q2H
     Route: 047
  2. FLUOROMETHOLONE (FLUORMETHOLONE) 0.1% SUSPENSION EYE DROPS, SUSPENSION [Suspect]
     Dosage: Q2H
     Route: 047
  3. NATAMYCIN (NATAMYCIN) 5% SUSPENSION EYE DROPS, SUSPENSION [Suspect]
     Indication: KERATITIS
     Route: 047
  4. POVIDONE IODINE (POVIDONE-IODINE) 5 % SOLUTION EYE DROPS, SOLUTION [Suspect]
     Indication: KERATITIS
     Route: 047

REACTIONS (14)
  - CATARACT [None]
  - CONJUNCTIVAL HYPERAEMIA [None]
  - CORNEAL GRAFT REJECTION [None]
  - CORNEAL PERFORATION [None]
  - CORNEAL THINNING [None]
  - CORNEAL TRANSPLANT [None]
  - DRUG INEFFECTIVE [None]
  - EYE INFECTION FUNGAL [None]
  - FLAT ANTERIOR CHAMBER OF EYE [None]
  - HYPOTONY OF EYE [None]
  - INJURY CORNEAL [None]
  - KERATITIS [None]
  - POST PROCEDURAL COMPLICATION [None]
  - VISUAL ACUITY REDUCED [None]
